FAERS Safety Report 21296148 (Version 4)
Quarter: 2022Q4

REPORT INFORMATION
  Report Type: Spontaneous
  Country: US (occurrence: US)
  Receive Date: 20220906
  Receipt Date: 20221111
  Transmission Date: 20230113
  Serious: Yes (Hospitalization)
  Sender: FDA-Public Use
  Company Number: US-BRISTOL-MYERS SQUIBB COMPANY-2022-099809

PATIENT
  Age: 91 Year
  Sex: Male

DRUGS (2)
  1. REVLIMID [Suspect]
     Active Substance: LENALIDOMIDE
     Indication: Cellulitis
     Dosage: TAKE 1 CAPSULE BY MOUTH EVERY OTHER DAY FOR 3 WEEKS ON, 1 WEEK OFF
     Route: 048
     Dates: start: 20171104
  2. REVLIMID [Suspect]
     Active Substance: LENALIDOMIDE
     Dosage: TAKE 1 CAPSULE BY MOUTH EVERY OTHER DAY FOR 3 WEEKS ON, 1 WEEK OFF
     Route: 048
     Dates: start: 20170411

REACTIONS (3)
  - Fall [Recovered/Resolved]
  - Off label use [Unknown]
  - Product dose omission issue [Unknown]
